FAERS Safety Report 23979098 (Version 1)
Quarter: 2024Q2

REPORT INFORMATION
  Report Type: Spontaneous
  Country: GB (occurrence: GB)
  Receive Date: 20240615
  Receipt Date: 20240615
  Transmission Date: 20240716
  Serious: Yes (Other)
  Sender: FDA-Public Use
  Company Number: GB-MHRA-TPP24203817C7890021YC1718190841270

PATIENT
  Age: 70 Year
  Sex: Male
  Weight: 94 kg

DRUGS (24)
  1. EMPAGLIFLOZIN [Suspect]
     Active Substance: EMPAGLIFLOZIN
     Indication: Ill-defined disorder
     Dosage: FOA-TPP YC - PLEASE RECLASSIFY
     Dates: start: 20240612
  2. EMPAGLIFLOZIN [Concomitant]
     Active Substance: EMPAGLIFLOZIN
     Indication: Ill-defined disorder
     Dosage: FOA-TPP YC - PLEASE RECLASSIFY
     Dates: start: 20240423, end: 20240510
  3. MOMETASONE [Concomitant]
     Active Substance: MOMETASONE
     Indication: Ill-defined disorder
     Dosage: ONE TO TWO SPRAYS IN TO EACH NOSTRIL ?FOA-TPP YC - PLEASE RECLASSIFY
     Dates: start: 20240328, end: 20240425
  4. BETAMETHASONE VALERATE [Concomitant]
     Active Substance: BETAMETHASONE VALERATE
     Indication: Ill-defined disorder
     Dosage: FOA-TPP YC - PLEASE RECLASSIFY
     Dates: start: 20190621
  5. AMOXICILLIN\CLAVULANATE POTASSIUM [Concomitant]
     Active Substance: AMOXICILLIN\CLAVULANATE POTASSIUM
     Indication: Ill-defined disorder
     Dosage: FOA-TPP YC - PLEASE RECLASSIFY
     Dates: start: 20240504, end: 20240511
  6. OTOMIZE [Concomitant]
     Indication: Ill-defined disorder
     Dosage: APPLY 1 METERED DOSE SPRAY (60MG) INTO EACH AFF...?FOA-TPP YC - PLEASE RECLASSIFY
     Dates: start: 20240504, end: 20240511
  7. ACYCLOVIR [Concomitant]
     Active Substance: ACYCLOVIR
     Indication: Ill-defined disorder
     Dosage: ONE TO BE TAKEN FIVE TIMES A DAY FOR 7 DAYS?FOA-TPP YC - PLEASE RECLASSIFY
     Dates: start: 20240514, end: 20240521
  8. ASPIRIN [Concomitant]
     Active Substance: ASPIRIN
     Indication: Ill-defined disorder
     Dosage: FOA-TPP YC - PLEASE RECLASSIFY
     Dates: start: 20190621, end: 20240423
  9. DERMOL [Concomitant]
     Active Substance: BENZALKONIUM CHLORIDE\CHLORHEXIDINE HYDROCHLORIDE\ISOPROPYL MYRISTATE\PARAFFIN
     Indication: Ill-defined disorder
     Dosage: USE AS DIRECTED?FOA-TPP YC - PLEASE RECLASSIFY
     Dates: start: 20190621
  10. TAMSULOSIN HYDROCHLORIDE [Concomitant]
     Active Substance: TAMSULOSIN HYDROCHLORIDE
     Indication: Ill-defined disorder
     Dosage: FOA-TPP YC - PLEASE RECLASSIFY
     Dates: start: 20190621
  11. SILDENAFIL [Concomitant]
     Active Substance: SILDENAFIL
     Indication: Ill-defined disorder
     Dosage: TAKE ONE TABLET, ONE HOUR BEFORE DESIRED EFFECT.?FOA-TPP YC - PLEASE RECLASSIFY
     Dates: start: 20210514
  12. CLOPIDOGREL [Concomitant]
     Active Substance: CLOPIDOGREL BISULFATE
     Indication: Ill-defined disorder
     Dosage: TAKE ONE IN THE MORNING FOR ONE YEAR ONLY?FOA-TPP YC - PLEASE RECLASSIFY
     Dates: start: 20230227, end: 20240423
  13. ENTRESTO [Concomitant]
     Active Substance: SACUBITRIL\VALSARTAN
     Indication: Ill-defined disorder
     Dosage: IN THE MORNING?FOA-TPP YC - PLEASE RECLASSIFY
     Dates: start: 20230227
  14. EPLERENONE [Concomitant]
     Active Substance: EPLERENONE
     Indication: Ill-defined disorder
     Dosage: TAKE HALF A TABLET IN THE MORNING?FOA-TPP YC - PLEASE RECLASSIFY
     Dates: start: 20230227
  15. EZETIMIBE [Concomitant]
     Active Substance: EZETIMIBE
     Indication: Ill-defined disorder
     Dosage: IN THE MORNING?FOA-TPP YC - PLEASE RECLASSIFY
     Dates: start: 20230227
  16. NITROGLYCERIN [Concomitant]
     Active Substance: NITROGLYCERIN
     Indication: Ill-defined disorder
     Dosage: ONE SPRAY UNDER THE TONGUE IF HAVING CHEST PAIN...?FOA-TPP YC - PLEASE RECLASSIFY
     Dates: start: 20230227
  17. ROSUVASTATIN [Concomitant]
     Active Substance: ROSUVASTATIN
     Indication: Ill-defined disorder
     Dosage: TAKE ONE IN THE EVENING TO LOWER CHOLESTEROL LE...?FOA-TPP YC - PLEASE RECLASSIFY
     Dates: start: 20230227
  18. BISOPROLOL [Concomitant]
     Active Substance: BISOPROLOL\BISOPROLOL FUMARATE
     Indication: Ill-defined disorder
     Dosage: ONE TO BE TAKEN DAILY?FOA-TPP YC - PLEASE RECLASSIFY
     Dates: start: 20230324
  19. TERBINAFINE [Concomitant]
     Active Substance: TERBINAFINE
     Indication: Ill-defined disorder
     Dosage: TAKE ONE DAILY TO TREAT FUNGAL INFECTION (REVIE...?FOA-TPP YC - PLEASE RECLASSIFY
     Dates: start: 20230626, end: 20240509
  20. COCODAMOL [Concomitant]
     Active Substance: ACETAMINOPHEN\CODEINE PHOSPHATE
     Indication: Ill-defined disorder
     Dosage: TAKE ONE OR TWO TABLETS UPTO FOUR TIMES DAILY F...?FOA-TPP YC - PLEASE RECLASSIFY
     Dates: start: 20230814, end: 20240423
  21. PANTOPRAZOLE [Concomitant]
     Active Substance: PANTOPRAZOLE
     Indication: Ill-defined disorder
     Dosage: FOA-TPP YC - PLEASE RECLASSIFY
     Dates: start: 20230829
  22. FUROSEMIDE [Concomitant]
     Active Substance: FUROSEMIDE
     Indication: Ill-defined disorder
     Dosage: IN THE MORNING?FOA-TPP YC - PLEASE RECLASSIFY
     Dates: start: 20240423
  23. ACETAMINOPHEN [Concomitant]
     Active Substance: ACETAMINOPHEN
     Indication: Ill-defined disorder
     Dosage: ONE TO TWO TO BE TAKEN FOUR TIMES A DAY AS REQU...?FOA-TPP YC - PLEASE RECLASSIFY
     Dates: start: 20240423
  24. EDOXABAN [Concomitant]
     Active Substance: EDOXABAN
     Indication: Ill-defined disorder
     Dosage: TO THIN BLOOD?FOA-TPP YC - PLEASE RECLASSIFY
     Dates: start: 20240423

REACTIONS (2)
  - Balanoposthitis [Recovered/Resolved]
  - Candida infection [Recovered/Resolved]

NARRATIVE: CASE EVENT DATE: 20240612
